FAERS Safety Report 16551296 (Version 1)
Quarter: 2019Q3

REPORT INFORMATION
  Report Type: Report from Study
  Country: US (occurrence: US)
  Receive Date: 20190710
  Receipt Date: 20190710
  Transmission Date: 20191004
  Serious: Yes (Other)
  Sender: FDA-Public Use
  Company Number: US-ROCHE-2349521

PATIENT

DRUGS (5)
  1. ALTEPLASE. [Suspect]
     Active Substance: ALTEPLASE
     Indication: MYOCARDIAL INFARCTION
     Dosage: 10 MG BOLUS FOLLOWED BY A 50 MG I.V. INFUSION DURING THE FIRST HOUR AND A 20 MG I.V. INFUSION, SUCCE
     Route: 042
  2. DILTIAZEM. [Suspect]
     Active Substance: DILTIAZEM
     Indication: MYOCARDIAL INFARCTION
     Route: 065
  3. STREPTOKINASE [Suspect]
     Active Substance: STREPTOKINASE
     Indication: MYOCARDIAL INFARCTION
     Dosage: 1.5 MU
     Route: 042
  4. ASPIRIN [ACETYLSALICYLIC ACID] [Suspect]
     Active Substance: ASPIRIN
     Indication: MYOCARDIAL INFARCTION
     Route: 065
  5. HEPARIN [Suspect]
     Active Substance: HEPARIN SODIUM
     Indication: MYOCARDIAL INFARCTION
     Route: 042

REACTIONS (8)
  - Haematoma [Unknown]
  - Haemorrhage [Unknown]
  - Gastrointestinal haemorrhage [Unknown]
  - Haemorrhage intracranial [Unknown]
  - Haemorrhagic stroke [Unknown]
  - Cardiogenic shock [Unknown]
  - Haematuria [Unknown]
  - Cerebrovascular accident [Unknown]
